FAERS Safety Report 6010040-7 (Version None)
Quarter: 2008Q4

REPORT INFORMATION
  Report Type: 
  Country: None (occurrence: None)
  Receive Date: 20081218
  Receipt Date: 20081210
  Transmission Date: 20090506
  Serious: Yes (Hospitalization, Other)
  Sender: FDA-Public Use
  Company Number: CR-ASTRAZENECA-2008UW26767

PATIENT
  Age: 20793 Day
  Sex: Female

DRUGS (6)
  1. SEROQUEL XR [Suspect]
     Route: 048
  2. RISPERIDONE [Concomitant]
  3. GEMFIBROZIL [Concomitant]
     Indication: HYPERCHOLESTEROLAEMIA
     Route: 048
     Dates: start: 20080801
  4. ENALAPRIL MALEATE [Concomitant]
     Indication: HYPERTENSION
     Route: 048
     Dates: start: 20070101
  5. FLUOXETINE [Concomitant]
     Indication: SCHIZOPHRENIA
     Route: 048
     Dates: start: 20070101
  6. PERPHENAZINE [Concomitant]
     Indication: SCHIZOPHRENIA
     Route: 048
     Dates: start: 20070101, end: 20081006

REACTIONS (6)
  - AMNESIA [None]
  - ANIMAL BITE [None]
  - CONSTIPATION [None]
  - INCREASED APPETITE [None]
  - SCHIZOPHRENIA [None]
  - SOMNOLENCE [None]
